FAERS Safety Report 15537921 (Version 2)
Quarter: 2019Q1

REPORT INFORMATION
  Report Type: Spontaneous
  Country: US (occurrence: US)
  Receive Date: 20181022
  Receipt Date: 20190128
  Transmission Date: 20190417
  Serious: No
  Sender: FDA-Public Use
  Company Number: US-SA-2018SA108029

PATIENT
  Age: 59 Year
  Sex: Female
  Weight: 104.32 kg

DRUGS (35)
  1. DUPIXENT [Suspect]
     Active Substance: DUPILUMAB
     Dosage: 300 UNK
     Route: 058
     Dates: start: 20171025
  2. CELEBREX [Concomitant]
     Active Substance: CELECOXIB
     Indication: PAIN
     Dosage: 200 MG,QD
     Route: 048
     Dates: start: 201707
  3. BASAGLAR [Concomitant]
     Active Substance: INSULIN GLARGINE
     Dosage: DOSE: 100 UNITS/MG VARYING SCALE BASED ON FBS EACH MORNING, ADD 2 UNITS FOR FBS }130 FROM PREVIOUS D
     Route: 065
     Dates: start: 201603
  4. ALBUTEROL SULFATE. [Concomitant]
     Active Substance: ALBUTEROL SULFATE
     Indication: PNEUMONIA
     Dosage: UNK UNK,PRN
     Route: 055
  5. EVENING PRIMROSE OIL [Concomitant]
     Active Substance: EVENING PRIMROSE OIL\HERBALS
     Dosage: 1 DF,HS
     Route: 065
  6. BENADRYL [Concomitant]
     Active Substance: DIPHENHYDRAMINE HYDROCHLORIDE
     Dosage: UNK UNK,PRN
     Route: 065
  7. FLUOCINONIDE. [Concomitant]
     Active Substance: FLUOCINONIDE
     Indication: ECZEMA
     Dosage: UNK UNK,BID
     Route: 061
  8. CLOBETASOL PROPIONATE. [Concomitant]
     Active Substance: CLOBETASOL PROPIONATE
     Indication: ECZEMA
     Dosage: UNK UNK,BID
     Route: 065
  9. COLLAGENASE SANTYL [Concomitant]
     Active Substance: COLLAGENASE CLOSTRIDIUM HISTOLYTICUM
     Dosage: 1 -2 TIMED AS NEEDED
     Route: 065
  10. ASA [Concomitant]
     Active Substance: ASPIRIN
     Indication: INFLAMMATION
  11. VITAMIN B6 [Concomitant]
     Active Substance: PYRIDOXINE HYDROCHLORIDE
     Dosage: UNK UNK,UNK
     Route: 048
  12. ASCORBIC ACID. [Concomitant]
     Active Substance: ASCORBIC ACID
     Dosage: 1 DF,PRN
     Route: 065
  13. KETOCONAZOLE. [Concomitant]
     Active Substance: KETOCONAZOLE
     Dosage: UNK UNK,PRN
     Route: 061
  14. ASA [Concomitant]
     Active Substance: ASPIRIN
     Indication: SCIATICA
     Dosage: 1 DF,QD
     Route: 048
  15. OMEPRAZOLE. [Concomitant]
     Active Substance: OMEPRAZOLE
     Dosage: 20 MG,QOD
     Route: 048
  16. VITAMIN D3 [Concomitant]
     Active Substance: CHOLECALCIFEROL
     Dosage: 1 DF,BID
     Route: 065
  17. CURCUMA LONGA [Concomitant]
     Active Substance: HERBALS\TURMERIC
     Dosage: 1 DF,UNK
     Route: 065
  18. SILVER SULFADIAZINE. [Concomitant]
     Active Substance: SILVER SULFADIAZINE
     Dosage: UNK UNK,QD
     Route: 061
  19. MYCOPHENOLATE [Concomitant]
     Active Substance: MYCOPHENOLIC ACID
     Indication: AUTOIMMUNE DISORDER
     Dosage: 500 DF,TID
     Route: 048
     Dates: start: 2017, end: 20171217
  20. GENTAMICIN SULFATE. [Concomitant]
     Active Substance: GENTAMICIN SULFATE
     Dosage: UNK UNK,BID
     Route: 061
  21. MOMETASONE FUROATE. [Concomitant]
     Active Substance: MOMETASONE FUROATE
     Dosage: UNK UNK,PRN
     Route: 061
  22. ALBUTEROL SULFATE. [Concomitant]
     Active Substance: ALBUTEROL SULFATE
     Indication: BRONCHITIS
  23. DUPIXENT [Suspect]
     Active Substance: DUPILUMAB
     Dosage: 300 MG,QOW
     Route: 058
     Dates: start: 20171005, end: 20171228
  24. LANTUS [Concomitant]
     Active Substance: INSULIN GLARGINE
     Indication: INSULIN RESISTANCE
  25. DOXYCYCLINE HYCLATE. [Concomitant]
     Active Substance: DOXYCYCLINE HYCLATE
     Dosage: 1 DF,BID
     Route: 048
     Dates: start: 20170811, end: 20180316
  26. MUPIROCIN. [Concomitant]
     Active Substance: MUPIROCIN
     Indication: ECZEMA
     Dosage: 2 - 3 TIME AS NEEDED
     Route: 061
  27. SYMBICORT [Concomitant]
     Active Substance: BUDESONIDE\FORMOTEROL FUMARATE DIHYDRATE
     Indication: BRONCHITIS
  28. VACCINIUM MACROCARPON [Concomitant]
     Active Substance: CRANBERRY
     Dosage: UNK UNK,QD
     Route: 065
  29. OTEZLA [Concomitant]
     Active Substance: APREMILAST
     Indication: PSORIATIC ARTHROPATHY
  30. HYDROCHLOROTHIAZIDE. [Concomitant]
     Active Substance: HYDROCHLOROTHIAZIDE
     Indication: HYPERTENSION
     Dosage: 2 DF,QD
     Route: 048
     Dates: start: 201510
  31. DUPIXENT [Suspect]
     Active Substance: DUPILUMAB
     Indication: DERMATITIS ATOPIC
     Dosage: 300 UNK
     Route: 058
     Dates: start: 20170714
  32. DUPIXENT [Suspect]
     Active Substance: DUPILUMAB
     Dosage: 600 MG,1X
     Route: 058
     Dates: start: 20170920, end: 20170920
  33. MYCOPHENOLATE [Concomitant]
     Active Substance: MYCOPHENOLIC ACID
     Dosage: UNK UNK,UNK
     Route: 065
     Dates: start: 20180406
  34. SYMBICORT [Concomitant]
     Active Substance: BUDESONIDE\FORMOTEROL FUMARATE DIHYDRATE
     Indication: PNEUMONIA
     Dosage: UNK UNK,BID
     Route: 055
  35. ALPHA LIPOIC ACID [Concomitant]
     Active Substance: .ALPHA.-LIPOIC ACID
     Dosage: 1 DF,BID
     Route: 065

REACTIONS (15)
  - Joint swelling [Unknown]
  - Arthralgia [Unknown]
  - Inappropriate schedule of product administration [Recovering/Resolving]
  - Productive cough [Recovered/Resolved]
  - Bronchitis [Recovered/Resolved]
  - Malaise [Unknown]
  - Pain in extremity [Unknown]
  - Peripheral swelling [Unknown]
  - Sinus disorder [Recovered/Resolved]
  - Mouth ulceration [Unknown]
  - Oropharyngeal pain [Recovered/Resolved]
  - Pyrexia [Recovered/Resolved]
  - Injection site discolouration [Unknown]
  - Skin wound [Unknown]
  - Rash [Recovering/Resolving]

NARRATIVE: CASE EVENT DATE: 201709
